FAERS Safety Report 6758296-7 (Version None)
Quarter: 2010Q2

REPORT INFORMATION
  Report Type: 
  Country: None (occurrence: None)
  Receive Date: 20100524
  Receipt Date: 20100409
  Transmission Date: 20101027
  Serious: No
  Sender: FDA-Public Use
  Company Number: 010027

PATIENT
  Age: 44 Year
  Sex: Female

DRUGS (1)
  1. CIMZIA [Suspect]
     Indication: CROHN'S DISEASE
     Dosage: (400 MG 1X/MONTH SUBCUTANEOUS)
     Route: 058

REACTIONS (4)
  - ARTHRALGIA [None]
  - INJECTION SITE DISCOLOURATION [None]
  - LIMB DISCOMFORT [None]
  - MUSCULOSKELETAL CHEST PAIN [None]
